FAERS Safety Report 4315598-1 (Version None)
Quarter: 2004Q1

REPORT INFORMATION
  Report Type: 
  Country: None (occurrence: None)
  Receive Date: 20040310
  Receipt Date: 20040112
  Transmission Date: 20041129
  Serious: Yes (Other)
  Sender: FDA-Public Use
  Company Number: 200400362

PATIENT
  Age: 77 Year
  Sex: Female

DRUGS (8)
  1. TYLENOL [Suspect]
     Indication: PAIN IN EXTREMITY
     Dosage: 650 MG
     Dates: start: 20031230
  2. PREDNISONE [Concomitant]
  3. CENTRUM CHEWABLES (VITAMINS) [Concomitant]
  4. NORVASC [Concomitant]
  5. MAXZIDE (HYDROCHLOROTHIAZIDE) [Concomitant]
  6. ASPIRIN [Concomitant]
  7. PEPCID AC [Concomitant]
  8. LIPITOR [Concomitant]

REACTIONS (3)
  - COMA [None]
  - INTESTINAL MASS [None]
  - SOMNOLENCE [None]
